FAERS Safety Report 7043731-X (Version None)
Quarter: 2010Q4

REPORT INFORMATION
  Report Type: 
  Country: None (occurrence: None)
  Receive Date: 20101013
  Receipt Date: 20101005
  Transmission Date: 20110411
  Serious: No
  Sender: FDA-Public Use
  Company Number: US-B.I. PHARMACEUTICALS,INC./RIDGEFIELD-2010-BP-09922BP

PATIENT
  Sex: Female

DRUGS (20)
  1. SPIRIVA [Suspect]
     Indication: DYSPNOEA
     Dosage: 18 MCG
     Route: 055
  2. SPIRIVA [Suspect]
     Indication: WHEEZING
  3. SPIRIVA [Suspect]
     Indication: EMPHYSEMA
  4. SPIRIVA [Suspect]
     Indication: CHRONIC OBSTRUCTIVE PULMONARY DISEASE
  5. PREDNISONE [Concomitant]
  6. PHENEGREN [Concomitant]
  7. ADVIL [Concomitant]
  8. CITRACAL [Concomitant]
     Indication: OSTEOPOROSIS
  9. DIFLUCAN [Concomitant]
     Indication: CANDIDIASIS
  10. LIPITOR [Concomitant]
     Indication: BLOOD CHOLESTEROL INCREASED
  11. OXYCONTIN [Concomitant]
  12. PERCOCET [Concomitant]
  13. XOPONEX [Concomitant]
  14. VITAMIN D [Concomitant]
     Indication: OSTEOPOROSIS
  15. RECLAST [Concomitant]
     Indication: OSTEOPOROSIS
  16. CELEXA [Concomitant]
     Indication: DEPRESSION
  17. LOTRISONE [Concomitant]
  18. KETOCONAZOLE [Concomitant]
  19. ASCORBIC ACID [Concomitant]
  20. MULTI-VITAMIN [Concomitant]

REACTIONS (4)
  - BRONCHIAL IRRITATION [None]
  - BRONCHOSPASM [None]
  - COUGH [None]
  - PHARYNGEAL INFLAMMATION [None]
